FAERS Safety Report 6754644-2 (Version None)
Quarter: 2010Q2

REPORT INFORMATION
  Report Type: 
  Country: None (occurrence: None)
  Receive Date: 20100524
  Receipt Date: 20100323
  Transmission Date: 20101027
  Serious: No
  Sender: FDA-Public Use
  Company Number: 009234

PATIENT
  Sex: Female

DRUGS (5)
  1. CIMZIA [Suspect]
     Indication: CROHN'S DISEASE
     Dosage: (400 MG 1X/MONTH SUBCUTANEOUS)
     Route: 058
     Dates: start: 20100126
  2. TOPAMAX [Concomitant]
  3. OXCARBAZEPINE [Concomitant]
  4. CITALOPRAM HYDROBROMIDE [Concomitant]
  5. ALPRAZOLAM [Concomitant]

REACTIONS (2)
  - DYSURIA [None]
  - POLLAKIURIA [None]
